FAERS Safety Report 23395652 (Version 2)
Quarter: 2024Q1

REPORT INFORMATION
  Report Type: Report from Study
  Country: FR (occurrence: FR)
  Receive Date: 20240112
  Receipt Date: 20240203
  Transmission Date: 20240410
  Serious: Yes (Hospitalization, Other)
  Sender: FDA-Public Use
  Company Number: FR-AUROBINDO-AUR-APL-2024-001449

PATIENT
  Age: 19 Year
  Sex: Female

DRUGS (1)
  1. VENLAFAXINE [Suspect]
     Active Substance: VENLAFAXINE HYDROCHLORIDE
     Indication: Product used for unknown indication
     Dosage: 11.25 GRAM 1 TOTAL
     Route: 048

REACTIONS (4)
  - Cardiac arrest [Recovering/Resolving]
  - Poisoning [Unknown]
  - Ventricular dysfunction [Recovering/Resolving]
  - Overdose [Recovered/Resolved]
